FAERS Safety Report 6624771-9 (Version None)
Quarter: 2010Q1

REPORT INFORMATION
  Report Type: 
  Country: None (occurrence: None)
  Receive Date: 20100223
  Receipt Date: 20091118
  Transmission Date: 20100710
  Serious: Yes (Other)
  Sender: FDA-Public Use
  Company Number: 8054972

PATIENT
  Sex: Female
  Weight: 56.2 kg

DRUGS (11)
  1. CERTOLIZUMAB PEGOL (UCB, INC) [Suspect]
     Indication: CROHN'S DISEASE
     Dosage: 400 MG, ONCE MONTHLY SUBCUTANEOUS
     Route: 058
     Dates: start: 20091013
  2. PRILOSEC [Concomitant]
  3. IMURAN [Concomitant]
  4. VITAMIN B-12 [Concomitant]
  5. PREDNISONE [Concomitant]
  6. ACECOL [Concomitant]
  7. LOMOTIL [Concomitant]
  8. THYROID TAB [Concomitant]
  9. LEVSIN [Concomitant]
  10. MOTRIN [Concomitant]
  11. EFFEXOR [Concomitant]

REACTIONS (4)
  - DYSPHAGIA [None]
  - FAECAL INCONTINENCE [None]
  - GASTROINTESTINAL OEDEMA [None]
  - INTESTINAL STENOSIS [None]
